FAERS Safety Report 5091969-3 (Version None)
Quarter: 2006Q3

REPORT INFORMATION
  Report Type: 
  Country: None (occurrence: None)
  Receive Date: 20060825
  Receipt Date: 20060707
  Transmission Date: 20061208
  Serious: No
  Sender: FDA-Public Use
  Company Number: AU200607003943

PATIENT
  Age: 27 Year
  Sex: Male

DRUGS (3)
  1. ZYPREXA [Suspect]
     Indication: PSYCHOTIC DISORDER
     Dosage: 20 MG
     Dates: start: 20060601, end: 20060101
  2. ATIVAN [Concomitant]
  3. ZOLPIDEM TARTRATE [Concomitant]

REACTIONS (4)
  - EPISTAXIS [None]
  - INDURATION [None]
  - STOMATITIS [None]
  - SWELLING FACE [None]
